FAERS Safety Report 13027246 (Version 2)
Quarter: 2017Q1

REPORT INFORMATION
  Report Type: Report from Study
  Country: None (occurrence: IL)
  Receive Date: 20161214
  Receipt Date: 20170121
  Transmission Date: 20170428
  Serious: Yes (Hospitalization, Other)
  Sender: FDA-Public Use
  Company Number: IL-ABBVIE-16P-082-1807500-00

PATIENT
  Age: 26 Year
  Sex: Female

DRUGS (2)
  1. HUMIRA [Suspect]
     Active Substance: ADALIMUMAB
     Route: 058
  2. HUMIRA [Suspect]
     Active Substance: ADALIMUMAB
     Indication: CROHN^S DISEASE
     Route: 058
     Dates: start: 20151124, end: 20151207

REACTIONS (12)
  - Condition aggravated [Recovered/Resolved]
  - Constipation [Unknown]
  - Condition aggravated [Unknown]
  - Muscle spasms [Recovering/Resolving]
  - Inflammation [Not Recovered/Not Resolved]
  - Abdominal pain [Recovered/Resolved]
  - Pyrexia [Recovered/Resolved]
  - Exposure during pregnancy [Unknown]
  - Diarrhoea [Unknown]
  - Intestinal stenosis [Unknown]
  - Headache [Recovering/Resolving]
  - Asthenia [Recovering/Resolving]

NARRATIVE: CASE EVENT DATE: 201606
